FAERS Safety Report 10177051 (Version 1)
Quarter: 2014Q2

REPORT INFORMATION
  Report Type: Report from Study
  Country: CA (occurrence: CA)
  Receive Date: 20140516
  Receipt Date: 20140516
  Transmission Date: 20141212
  Serious: Yes (Other)
  Sender: FDA-Public Use
  Company Number: CA-TEVA-481915USA

PATIENT
  Age: 62 Year
  Sex: Female
  Weight: 65.9 kg

DRUGS (16)
  1. BENDAMUSTINE [Suspect]
     Indication: NON-HODGKIN^S LYMPHOMA UNSPECIFIED HISTOLOGY INDOLENT
     Dosage: 198 (UNITS NOT REPORTED)
     Route: 042
     Dates: start: 20110518, end: 20110811
  2. EFFEXOR [Concomitant]
     Dates: start: 201002
  3. COLACE [Concomitant]
     Indication: CONSTIPATION
     Dates: start: 200807
  4. HYDROXYZINE [Concomitant]
     Indication: HYPERSENSITIVITY
     Dates: start: 201002
  5. SENOKOT [Concomitant]
     Indication: CONSTIPATION
     Dates: start: 200811
  6. LACTULOSE [Concomitant]
     Indication: CONSTIPATION
     Dates: start: 200811
  7. TYLENOL [Concomitant]
     Indication: PAIN
     Dates: start: 200811
  8. OXAZEPAM [Concomitant]
     Indication: PRODUCT USED FOR UNKNOWN INDICATION
     Dates: start: 200811
  9. METOCLOPRAMIDE [Concomitant]
     Indication: NAUSEA
     Dates: start: 200811
  10. LOSEC [Concomitant]
     Indication: DYSPEPSIA
     Dates: start: 201004
  11. ATARAX [Concomitant]
     Indication: PRURITUS
     Dates: start: 20110616
  12. BETADERM [Concomitant]
     Indication: PRURITUS
     Dates: start: 20110616
  13. NEULASTA [Concomitant]
     Indication: PROPHYLAXIS
     Dates: start: 20110520
  14. PREDNISONE [Concomitant]
     Indication: THROMBOCYTOPENIA
     Dates: start: 20120104, end: 20130501
  15. ALENDRONATE [Concomitant]
     Indication: OSTEOPOROSIS
     Dates: start: 20120504
  16. NYSTATIN [Concomitant]
     Indication: STOMATITIS
     Dates: start: 20110601

REACTIONS (1)
  - Leiomyosarcoma [Not Recovered/Not Resolved]
